FAERS Safety Report 6537906-3 (Version None)
Quarter: 2010Q1

REPORT INFORMATION
  Report Type: 
  Country: None (occurrence: None)
  Receive Date: 20100114
  Receipt Date: 20100111
  Transmission Date: 20100710
  Serious: Yes (Disabling)
  Sender: FDA-Public Use
  Company Number: US-MERCK-0901USA03479

PATIENT
  Age: 66 Year
  Sex: Male

DRUGS (3)
  1. FOSAMAX [Suspect]
     Indication: BONE DENSITY DECREASED
     Route: 048
     Dates: start: 20070101, end: 20080101
  2. LISINOPRIL [Concomitant]
     Route: 065
  3. PRAVASTATIN SODIUM [Concomitant]
     Route: 065

REACTIONS (5)
  - ABASIA [None]
  - ARTHRALGIA [None]
  - BACK PAIN [None]
  - BONE PAIN [None]
  - GAIT DISTURBANCE [None]
